FAERS Safety Report 5328156-7 (Version None)
Quarter: 2007Q2

REPORT INFORMATION
  Report Type: 
  Country: None (occurrence: None)
  Receive Date: 20070514
  Receipt Date: 20070430
  Transmission Date: 20071010
  Serious: Yes (Other)
  Sender: FDA-Public Use
  Company Number: GXKR2007FR03658

PATIENT
  Age: 50 Year
  Sex: Male
  Weight: 80 kg

DRUGS (6)
  1. SALBUTAMOL (NGX)(SALBUTAMOL) UNKNOWN [Suspect]
     Indication: ASTHMA
     Dosage: SEE IMAGE
     Route: 042
  2. TERBUTALINE (NGX)(TERBUTALINE) UNKNOWN [Suspect]
     Indication: ASTHMA
     Dosage: 5 MG EVERY 2 TO 4 HOURS, INHALATION
     Route: 055
  3. VALPROIC ACID [Concomitant]
  4. IPRATROPIUM BROMIDE [Concomitant]
  5. METHYLPREDNISOLONE [Concomitant]
  6. POTASSIUM CHLORIDE W/SODIUM CHLORIDE (POTASSIUM CHLORIDE, SODIUM CHLOR [Concomitant]

REACTIONS (1)
  - LACTIC ACIDOSIS [None]
